FAERS Safety Report 5097065-3 (Version None)
Quarter: 2006Q3

REPORT INFORMATION
  Report Type: 
  Country: None (occurrence: None)
  Receive Date: 20060901
  Receipt Date: 20060815
  Transmission Date: 20061208
  Serious: Yes (Hospitalization, Other)
  Sender: FDA-Public Use
  Company Number: US200608002170

PATIENT
  Age: 41 Year
  Sex: Female
  Weight: 116 kg

DRUGS (6)
  1. ZYPREXA [Suspect]
     Dosage: 20 MG
     Dates: start: 20030601, end: 20060501
  2. SEROQUEL [Concomitant]
  3. RISPERDAL [Concomitant]
  4. ZOLOFT [Concomitant]
  5. TENORMIN /NEZ/ (ATENOLOL) [Concomitant]
  6. CELEXA [Concomitant]

REACTIONS (8)
  - BLOOD CHOLESTEROL ABNORMAL [None]
  - CHEST PAIN [None]
  - DIABETES MELLITUS [None]
  - HEPATITIS VIRAL [None]
  - HYPERTENSION [None]
  - METABOLIC DISORDER [None]
  - OBESITY [None]
  - VISION BLURRED [None]
